FAERS Safety Report 14977841 (Version 1)
Quarter: 2018Q2

REPORT INFORMATION
  Report Type: Spontaneous
  Country: DE (occurrence: DE)
  Receive Date: 20180606
  Receipt Date: 20180606
  Transmission Date: 20180711
  Serious: Yes (Hospitalization)
  Sender: FDA-Public Use
  Company Number: DE-JNJFOC-20180540696

PATIENT
  Age: 38 Year
  Sex: Male

DRUGS (2)
  1. REGAINE MANNER SCHAUM 5% [Suspect]
     Active Substance: MINOXIDIL
     Indication: ALOPECIA
     Route: 061
     Dates: start: 20171001, end: 20180527
  2. REGAINE MANNER SCHAUM 5% [Suspect]
     Active Substance: MINOXIDIL
     Route: 061

REACTIONS (4)
  - Paraesthesia [Recovering/Resolving]
  - Hypoaesthesia [Recovering/Resolving]
  - Overdose [Unknown]
  - Inappropriate schedule of drug administration [Unknown]

NARRATIVE: CASE EVENT DATE: 20171001
